FAERS Safety Report 5036493-9 (Version None)
Quarter: 2006Q2

REPORT INFORMATION
  Report Type: 
  Country: None (occurrence: None)
  Receive Date: 20060628
  Receipt Date: 20060619
  Transmission Date: 20061013
  Serious: Yes (Hospitalization)
  Sender: FDA-Public Use
  Company Number: AT-JNJFOC-20060604027

PATIENT
  Age: 64 Year
  Sex: Female

DRUGS (1)
  1. REMICADE [Suspect]
     Indication: WEGENER'S GRANULOMATOSIS
     Dosage: 2 INFUSIONS
     Route: 042

REACTIONS (2)
  - ASPERGILLOSIS [None]
  - URINARY TRACT INFECTION [None]
